FAERS Safety Report 9305930 (Version 3)
Quarter: 2013Q2

REPORT INFORMATION
  Report Type: Spontaneous
  Country: BR (occurrence: None)
  Receive Date: 20130516
  Receipt Date: 20130603
  Transmission Date: 20140414
  Serious: Yes (Other)
  Sender: FDA-Public Use
  Company Number: 2013035953

PATIENT
  Age: 68 Year
  Sex: Female

DRUGS (1)
  1. ALBUMINAR [Suspect]
     Indication: PLASMAPHERESIS
     Dosage: 25 ML, 15ML/MIN
     Route: 042
     Dates: start: 20130430, end: 20130501

REACTIONS (10)
  - Suspected transmission of an infectious agent via product [None]
  - Bacteraemia [None]
  - Hyperthermia [None]
  - Chills [None]
  - Medication error [None]
  - Hypertension [None]
  - Hyperhidrosis [None]
  - Cold sweat [None]
  - Bacteraemia [None]
  - Hyperhidrosis [None]
